FAERS Safety Report 5023542-7 (Version None)
Quarter: 2006Q2

REPORT INFORMATION
  Report Type: 
  Country: None (occurrence: None)
  Receive Date: 20060606
  Receipt Date: 20060519
  Transmission Date: 20061013
  Serious: Yes (Hospitalization)
  Sender: FDA-Public Use
  Company Number: 224102

PATIENT
  Age: 62 Year
  Sex: Male
  Weight: 67 kg

DRUGS (8)
  1. BEVACIZUMAB (BEVACIZUMAB)PWDR + SOLVENT, INFUSION SOLN, 100MG [Suspect]
     Indication: NON-SMALL CELL LUNG CANCER
     Dosage: 15 MG/KG, Q3W; INTRAVENOUS
     Route: 042
     Dates: start: 20060109
  2. CISPLATIN (CISPLATIN) UNBLINDED [Suspect]
     Indication: NON-SMALL CELL LUNG CANCER
     Dosage: 80 MG/M2 Q3W; INTRAVENOUS
     Route: 042
     Dates: start: 20060109
  3. GEMCITABINE [Suspect]
     Indication: NON-SMALL CELL LUNG CANCER
     Dosage: 1250 MG/M2, UNK; INTRAVENOUS
     Route: 042
     Dates: start: 20060109
  4. OXYCODONE HCL [Concomitant]
  5. METHYLPREDNISOLONE [Concomitant]
  6. ONDANSETRON HCL [Concomitant]
  7. EMEND [Concomitant]
  8. NEURONTIN [Concomitant]

REACTIONS (3)
  - INTERVERTEBRAL DISC COMPRESSION [None]
  - NUCLEAR MAGNETIC RESONANCE IMAGING ABNORMAL [None]
  - OSTEONECROSIS [None]
